FAERS Safety Report 6457049-7 (Version None)
Quarter: 2009Q4

REPORT INFORMATION
  Report Type: 
  Country: None (occurrence: None)
  Receive Date: 20091125
  Receipt Date: 20091117
  Transmission Date: 20100525
  Serious: Yes (Hospitalization)
  Sender: FDA-Public Use
  Company Number: A0817796A

PATIENT
  Sex: Female
  Weight: 55.5 kg

DRUGS (3)
  1. LAPATINIB [Suspect]
     Indication: BREAST CANCER
     Dosage: 1500MG PER DAY
     Route: 048
     Dates: start: 20090825
  2. PACLITAXEL [Suspect]
     Indication: BREAST CANCER
     Dosage: 80MGM2 WEEKLY
     Route: 042
     Dates: start: 20090825
  3. LEVOTHYROXINE [Concomitant]
     Indication: HYPOTHYROIDISM
     Dosage: .1MG PER DAY
     Route: 048
     Dates: start: 20040101

REACTIONS (4)
  - DEEP VEIN THROMBOSIS [None]
  - HAEMOGLOBINURIA [None]
  - NEPHRITIC SYNDROME [None]
  - OEDEMA PERIPHERAL [None]
